FAERS Safety Report 6183133-1 (Version None)
Quarter: 2009Q2

REPORT INFORMATION
  Report Type: 
  Country: None (occurrence: None)
  Receive Date: 20090507
  Receipt Date: 20090504
  Transmission Date: 20091009
  Serious: Yes (Hospitalization)
  Sender: FDA-Public Use
  Company Number: NZ-ASTRAZENECA-2009AP03029

PATIENT
  Age: 24466 Day
  Sex: Female

DRUGS (5)
  1. LIDOCAINE [Suspect]
     Route: 042
     Dates: start: 19971113, end: 19971113
  2. COPHENYLCAINE FORTE [Concomitant]
     Route: 042
     Dates: start: 19971113, end: 19971113
  3. MEBHYDROLIN [Concomitant]
     Route: 048
  4. LORATADINE [Concomitant]
     Route: 048
  5. FRUSEMIDE [Concomitant]
     Route: 048

REACTIONS (1)
  - ANGIOEDEMA [None]
